FAERS Safety Report 8004210-6 (Version None)
Quarter: 2011Q4

REPORT INFORMATION
  Report Type: 
  Country: None (occurrence: None)
  Receive Date: 20111223
  Receipt Date: 20111219
  Transmission Date: 20120403
  Serious: No
  Sender: FDA-Public Use
  Company Number: US-BIOGENIDEC-2011BI017783

PATIENT
  Sex: Female

DRUGS (1)
  1. TYSABRI [Suspect]
     Indication: MULTIPLE SCLEROSIS
     Route: 042
     Dates: start: 20090223

REACTIONS (18)
  - SUICIDAL IDEATION [None]
  - PAIN IN EXTREMITY [None]
  - RED BLOOD CELL COUNT DECREASED [None]
  - FATIGUE [None]
  - DEPRESSION [None]
  - IRRITABILITY [None]
  - HYPOAESTHESIA [None]
  - MULTIPLE SCLEROSIS RELAPSE [None]
  - DEPRESSED MOOD [None]
  - MEMORY IMPAIRMENT [None]
  - DYSTONIA [None]
  - CLUMSINESS [None]
  - ASTHENIA [None]
  - HAEMOGLOBIN DECREASED [None]
  - PERSONALITY CHANGE [None]
  - WHITE BLOOD CELL COUNT DECREASED [None]
  - MOOD SWINGS [None]
  - PLATELET COUNT DECREASED [None]
